FAERS Safety Report 11357991 (Version 1)
Quarter: 2015Q3

REPORT INFORMATION
  Report Type: Spontaneous
  Country: US (occurrence: US)
  Receive Date: 20150803
  Receipt Date: 20150803
  Transmission Date: 20151125
  Serious: No
  Sender: FDA-Public Use
  Company Number: US-ELI_LILLY_AND_COMPANY-US200909006233

PATIENT
  Sex: Female

DRUGS (1)
  1. STRATTERA [Suspect]
     Active Substance: ATOMOXETINE HYDROCHLORIDE
     Indication: DECREASED APPETITE
     Dosage: 25 MG, DAILY (1/D)
     Route: 065

REACTIONS (5)
  - Wrong technique in product usage process [Unknown]
  - Underdose [Unknown]
  - Intentional product use issue [Unknown]
  - Anxiety [Unknown]
  - Drug ineffective [Unknown]
